FAERS Safety Report 20509895 (Version 1)
Quarter: 2022Q1

REPORT INFORMATION
  Report Type: Spontaneous
  Country: US (occurrence: US)
  Receive Date: 20220224
  Receipt Date: 20220224
  Transmission Date: 20220423
  Serious: Yes (Other)
  Sender: FDA-Public Use
  Company Number: US-CELLTRION INC.-2022US001963

PATIENT

DRUGS (2)
  1. TRUXIMA [Suspect]
     Active Substance: RITUXIMAB-ABBS
     Indication: Pulmonary vasculitis
     Dosage: 1000MG DAY 1 AND DAY 15 Q6MONTHS
     Dates: start: 20220215
  2. TRUXIMA [Suspect]
     Active Substance: RITUXIMAB-ABBS
     Indication: Eosinophilia

REACTIONS (3)
  - Pulmonary vasculitis [Unknown]
  - Eosinophilia [Unknown]
  - Off label use [Unknown]
